FAERS Safety Report 11061164 (Version 2)
Quarter: 2015Q2

REPORT INFORMATION
  Report Type: Spontaneous
  Country: US (occurrence: US)
  Receive Date: 20150424
  Receipt Date: 20150424
  Transmission Date: 20150821
  Serious: Yes (Death, Hospitalization, Other)
  Sender: FDA-Public Use
  Company Number: US-TEVA-556616USA

PATIENT
  Sex: Male

DRUGS (2)
  1. ZITHROMAX [Suspect]
     Active Substance: AZITHROMYCIN DIHYDRATE
     Route: 065
  2. AZITHROMYCIN [Suspect]
     Active Substance: AZITHROMYCIN ANHYDROUS
     Indication: PHARYNGITIS STREPTOCOCCAL
     Route: 065

REACTIONS (6)
  - Loss of consciousness [Unknown]
  - Electrocardiogram QT prolonged [Unknown]
  - Death [Fatal]
  - Ventricular tachycardia [Unknown]
  - Ventricular fibrillation [Unknown]
  - Vomiting [Unknown]

NARRATIVE: CASE EVENT DATE: 20130403
